FAERS Safety Report 8472549 (Version 3)
Quarter: 2012Q4

REPORT INFORMATION
  Report Type: 
  Country: JP (occurrence: JP)
  Receive Date: 20120322
  Receipt Date: 20120911
  Transmission Date: 20130627
  Serious: Yes (Hospitalization)
  Sender: FDA-Public Use
  Company Number: JP-GLAXOSMITHKLINE-B0673537A

PATIENT
  Sex: Male

DRUGS (11)
  1. LAMICTAL [Suspect]
     Indication: EPILEPSY
     Dosage: 25MG Per day
     Route: 048
     Dates: start: 20100816, end: 20100906
  2. DEPAKENE [Concomitant]
     Indication: EPILEPSY
     Dosage: 225MG Three times per day
     Route: 048
     Dates: start: 2007, end: 20100907
  3. PHENOBAL [Concomitant]
     Dates: start: 2007
  4. OLMETEC [Concomitant]
     Indication: HYPERLIPIDAEMIA
     Dosage: 20MG Per day
     Route: 048
     Dates: start: 2007, end: 20100906
  5. FAMOTIDINE [Concomitant]
     Indication: GASTRITIS
     Dosage: 10MG Twice per day
     Route: 048
     Dates: start: 2007, end: 20100906
  6. CETIRIZINE HYDROCHLORIDE [Concomitant]
     Indication: RHINITIS ALLERGIC
     Dosage: 10MG Per day
     Route: 048
     Dates: start: 2007, end: 20100906
  7. WARFARIN POTASSIUM [Concomitant]
     Route: 048
     Dates: start: 2007
  8. LIPITOR [Concomitant]
     Indication: HYPERLIPIDAEMIA
     Dosage: 10MG Per day
     Route: 048
     Dates: start: 2007, end: 20100906
  9. AMLODIN [Concomitant]
     Indication: HYPERTENSION
     Dosage: 5MG Per day
     Route: 048
     Dates: end: 20100906
  10. TAKEPRON [Concomitant]
     Route: 065
  11. PHENYTOIN [Concomitant]
     Route: 048

REACTIONS (29)
  - Stevens-Johnson syndrome [Recovering/Resolving]
  - Pyrexia [Unknown]
  - Rash [Unknown]
  - Rash [Recovering/Resolving]
  - Oral mucosa erosion [Recovering/Resolving]
  - Skin erosion [Recovering/Resolving]
  - Blister [Recovering/Resolving]
  - Erythema [Unknown]
  - White blood cell count increased [Unknown]
  - Red blood cell count decreased [Unknown]
  - Neutrophil percentage increased [Unknown]
  - Eosinophil count decreased [Unknown]
  - Lymphocyte percentage decreased [Unknown]
  - Monocyte percentage increased [Unknown]
  - Aspartate aminotransferase increased [Unknown]
  - Alanine aminotransferase increased [Unknown]
  - Blood alkaline phosphatase increased [Unknown]
  - Protein total decreased [Unknown]
  - Blood albumin decreased [Unknown]
  - Blood lactate dehydrogenase increased [Unknown]
  - Gamma-glutamyltransferase increased [Unknown]
  - C-reactive protein increased [Unknown]
  - Erythema multiforme [Unknown]
  - Generalised erythema [Unknown]
  - Skin erosion [Unknown]
  - Epidermal necrosis [Unknown]
  - Oedema [Unknown]
  - Lymphocytic infiltration [Unknown]
  - Liver disorder [Unknown]
